FAERS Safety Report 8555074-3 (Version None)
Quarter: 2012Q3

REPORT INFORMATION
  Report Type: 
  Country: None (occurrence: None)
  Receive Date: 20120731
  Receipt Date: 20120718
  Transmission Date: 20120928
  Serious: Yes (Life-Threatening, Hospitalization, Congenital Anomaly, Other)
  Sender: FDA-Public Use
  Company Number: DE-FRI-1000037444

PATIENT
  Sex: Male
  Weight: 2 kg

DRUGS (3)
  1. FOLIC ACID [Concomitant]
     Indication: PROPHYLAXIS OF NEURAL TUBE DEFECT
     Dosage: 0.8 MG
     Route: 064
  2. VENLAFAXINE [Suspect]
     Dosage: 150 MG
     Route: 064
  3. CITALOPRAM HYDROBROMIDE [Suspect]
     Dosage: 40 MG
     Route: 064
     Dates: end: 20111118

REACTIONS (13)
  - HAEMANGIOMA CONGENITAL [None]
  - FOETAL EXPOSURE DURING PREGNANCY [None]
  - ATRIAL SEPTAL DEFECT [None]
  - APGAR SCORE LOW [None]
  - CAESAREAN SECTION [None]
  - PREMATURE BABY [None]
  - FOETAL ARRHYTHMIA [None]
  - ELECTROCARDIOGRAM QT PROLONGED [None]
  - PATENT DUCTUS ARTERIOSUS [None]
  - SUPRAVENTRICULAR EXTRASYSTOLES [None]
  - BRADYCARDIA NEONATAL [None]
  - NEONATAL RESPIRATORY DISTRESS SYNDROME [None]
  - CEREBRAL HAEMORRHAGE [None]
